FAERS Safety Report 7893860-3 (Version None)
Quarter: 2011Q4

REPORT INFORMATION
  Report Type: 
  Country: None (occurrence: None)
  Receive Date: 20111104
  Receipt Date: 20111020
  Transmission Date: 20120403
  Serious: Yes (Other)
  Sender: FDA-Public Use
  Company Number: PHHY2011JP93267

PATIENT
  Age: 79 Year
  Sex: Female

DRUGS (2)
  1. CYCLOSPORINE [Suspect]
     Dosage: 100 MG PER DAY
  2. PREDNISOLONE [Concomitant]
     Dosage: 10 MG PER DAY

REACTIONS (7)
  - BLOOD IMMUNOGLOBULIN E INCREASED [None]
  - HEPATIC CIRRHOSIS [None]
  - PEMPHIGOID [None]
  - BLISTER [None]
  - PRURITUS GENERALISED [None]
  - DERMATITIS EXFOLIATIVE [None]
  - EOSINOPHILIA [None]
